FAERS Safety Report 6140885-4 (Version None)
Quarter: 2009Q2

REPORT INFORMATION
  Report Type: 
  Country: None (occurrence: None)
  Receive Date: 20090402
  Receipt Date: 20080509
  Transmission Date: 20091009
  Serious: No
  Sender: FDA-Public Use
  Company Number: US-KINGPHARMUSA00001-K200800535

PATIENT
  Age: 68 Year
  Sex: Male
  Weight: 81.633 kg

DRUGS (5)
  1. SKELAXIN [Suspect]
     Indication: MUSCULOSKELETAL DISCOMFORT
     Dosage: 800 MG, SINGLE
     Route: 048
     Dates: start: 20080509, end: 20080509
  2. SKELAXIN [Suspect]
     Indication: BACK PAIN
     Dosage: 800 MG, SINGLE
     Route: 048
     Dates: start: 20080509, end: 20080509
  3. UNSPECIFIED THYROID MEDICATION [Concomitant]
     Indication: THYROID DISORDER
     Dosage: UNK, QD
  4. UNSPECIFIED CHOLESTEROL MEDICATION [Concomitant]
     Indication: BLOOD CHOLESTEROL
  5. UNSPECIFIED BLOOD PRESSURE MEDICATION [Concomitant]
     Indication: HYPERTENSION
     Dosage: UNK, BID

REACTIONS (2)
  - DRUG INEFFECTIVE [None]
  - INSOMNIA [None]
